FAERS Safety Report 23046224 (Version 1)
Quarter: 2023Q4

REPORT INFORMATION
  Report Type: Spontaneous
  Country: FR (occurrence: FR)
  Receive Date: 20231009
  Receipt Date: 20231009
  Transmission Date: 20240109
  Serious: Yes (Hospitalization)
  Sender: FDA-Public Use
  Company Number: FR-VALIDUS PHARMACEUTICALS LLC-FR-VDP-2023-016747

PATIENT

DRUGS (4)
  1. CEFOTAXIME SODIUM [Suspect]
     Active Substance: CEFOTAXIME SODIUM
     Indication: Peritonitis
     Dosage: 6 GRAM, QD
     Route: 042
     Dates: start: 20230505, end: 20230510
  2. TRIMEBUTINE [Suspect]
     Active Substance: TRIMEBUTINE
     Indication: Abdominal pain
     Dosage: 300 MG, QD
     Route: 042
     Dates: start: 20230507, end: 20230512
  3. NEFOPAM [Suspect]
     Active Substance: NEFOPAM
     Indication: Pain
     Dosage: 1 DF, QD
     Route: 042
     Dates: start: 20230504, end: 20230508
  4. IOMERON [Suspect]
     Active Substance: IOMEPROL
     Indication: Computerised tomogram abdomen
     Dosage: 350 MG, QD
     Route: 042
     Dates: start: 20230504, end: 20230504

REACTIONS (1)
  - Rash maculo-papular [Recovered/Resolved]

NARRATIVE: CASE EVENT DATE: 20230509
